FAERS Safety Report 14929305 (Version 2)
Quarter: 2018Q2

REPORT INFORMATION
  Report Type: Spontaneous
  Country: ES (occurrence: ES)
  Receive Date: 20180523
  Receipt Date: 20180525
  Transmission Date: 20180711
  Serious: Yes (Other)
  Sender: FDA-Public Use
  Company Number: ES-GILEAD-2018-0339959

PATIENT
  Age: 52 Year
  Sex: Male

DRUGS (3)
  1. GENVOYA [Suspect]
     Active Substance: COBICISTAT\ELVITEGRAVIR\EMTRICITABINE\TENOFOVIR ALAFENAMIDE FUMARATE
     Indication: HIV INFECTION CDC CATEGORY C
     Dosage: UNK
     Route: 065
     Dates: start: 201609
  2. DARUNAVIR [Concomitant]
     Active Substance: DARUNAVIR
     Indication: HIV INFECTION CDC CATEGORY C
     Dosage: 600 MG, UNK
     Route: 065
     Dates: start: 201609
  3. AZACITIDINE. [Concomitant]
     Active Substance: AZACITIDINE

REACTIONS (1)
  - Myelodysplastic syndrome [Unknown]
